FAERS Safety Report 11411626 (Version 1)
Quarter: 2015Q3

REPORT INFORMATION
  Report Type: Spontaneous
  Country: US (occurrence: US)
  Receive Date: 20150821
  Receipt Date: 20150821
  Transmission Date: 20151125
  Serious: No
  Sender: FDA-Public Use
  Company Number: US-ELI_LILLY_AND_COMPANY-US201111002399

PATIENT
  Age: 60 Year
  Sex: Female

DRUGS (1)
  1. HUMULIN 70/30 [Suspect]
     Active Substance: INSULIN HUMAN

REACTIONS (9)
  - Nausea [Unknown]
  - Pharyngeal oedema [Unknown]
  - Headache [Unknown]
  - Pruritus [Unknown]
  - Ear discomfort [Unknown]
  - Acne [Unknown]
  - Rash [Unknown]
  - Choking sensation [Unknown]
  - Skin discolouration [Unknown]
